FAERS Safety Report 5746978-5 (Version None)
Quarter: 2008Q2

REPORT INFORMATION
  Report Type: 
  Country: None (occurrence: None)
  Receive Date: 20080522
  Receipt Date: 20080512
  Transmission Date: 20081010
  Serious: Yes (Death, Other)
  Sender: FDA-Public Use
  Company Number: US-PFIZER INC-2008041890

PATIENT
  Sex: Female
  Weight: 39 kg

DRUGS (4)
  1. LYRICA [Suspect]
     Indication: NEURALGIA
     Dates: start: 20080401, end: 20080401
  2. ALL OTHER THERAPEUTIC PRODUCTS [Concomitant]
  3. METHYLPREDNISOLONE [Concomitant]
  4. IBUPROFEN [Concomitant]

REACTIONS (4)
  - BURNING SENSATION [None]
  - CARDIAC VALVE DISEASE [None]
  - DEATH [None]
  - NEUROPATHY PERIPHERAL [None]
